FAERS Safety Report 7099215-6 (Version None)
Quarter: 2010Q4

REPORT INFORMATION
  Report Type: 
  Country: None (occurrence: None)
  Receive Date: 20101112
  Receipt Date: 20080615
  Transmission Date: 20110411
  Serious: No
  Sender: FDA-Public Use
  Company Number: US-KINGPHARMUSA00001-K200800702

PATIENT
  Sex: Female
  Weight: 97.052 kg

DRUGS (4)
  1. LEVOXYL [Suspect]
     Indication: HYPOTHYROIDISM
     Dosage: 150 MCG, QD
     Route: 048
     Dates: start: 20080401, end: 20080614
  2. LEVOXYL [Suspect]
     Dosage: 125 MCG, QD
     Route: 048
     Dates: start: 20080614
  3. TYLENOL (CAPLET) [Concomitant]
     Indication: ARTHRITIS
     Dosage: 2400 MG, QD
     Route: 048
  4. ZYRTEC [Concomitant]
     Indication: HYPERSENSITIVITY
     Dosage: UNK, PRN
     Route: 048

REACTIONS (7)
  - DISCOMFORT [None]
  - EYE PRURITUS [None]
  - HYPERSENSITIVITY [None]
  - LIP SWELLING [None]
  - RASH [None]
  - SWELLING [None]
  - SWOLLEN TONGUE [None]
